FAERS Safety Report 5282510-0 (Version None)
Quarter: 2007Q1

REPORT INFORMATION
  Report Type: 
  Country: None (occurrence: None)
  Receive Date: 20061226
  Receipt Date: 20060509
  Transmission Date: 20070707
  Serious: Yes (Other)
  Sender: FDA-Public Use
  Company Number: 2006-0009575

PATIENT
  Sex: Male

DRUGS (2)
  1. VIREAD [Suspect]
     Indication: HIV INFECTION
     Dosage: 1 IN 2 D
     Dates: start: 20000101
  2. VIREAD [Suspect]
     Indication: HIV INFECTION
     Dosage: 1 IN 2 D
     Dates: start: 20060101

REACTIONS (1)
  - GLOMERULAR FILTRATION RATE ABNORMAL [None]
